FAERS Safety Report 9223193 (Version 5)
Quarter: 2014Q1

REPORT INFORMATION
  Report Type: Spontaneous
  Country: US (occurrence: US)
  Receive Date: 20130410
  Receipt Date: 20140314
  Transmission Date: 20141002
  Serious: Yes (Disabling)
  Sender: FDA-Public Use
  Company Number: US-009507513-1304USA001428

PATIENT
  Sex: Female
  Weight: 87.98 kg

DRUGS (4)
  1. PREGNYL [Suspect]
     Indication: ASSISTED FERTILISATION
     Dosage: 10000 UNITS
     Route: 030
     Dates: start: 201303, end: 201303
  2. GANIRELIX ACETATE INJECTION [Concomitant]
  3. BRAVELLE [Concomitant]
  4. MENOPUR [Concomitant]

REACTIONS (4)
  - Ovarian failure [Recovered/Resolved]
  - Progesterone decreased [Unknown]
  - Product quality issue [Unknown]
  - Anxiety [Unknown]
